FAERS Safety Report 6554476-4 (Version None)
Quarter: 2010Q1

REPORT INFORMATION
  Report Type: 
  Country: None (occurrence: None)
  Receive Date: 20100127
  Receipt Date: 20100122
  Transmission Date: 20100710
  Serious: Yes (Other)
  Sender: FDA-Public Use
  Company Number: US-ROXANE LABORATORIES, INC.-2010-RO-00084RO

PATIENT
  Age: 8 Year
  Sex: Female

DRUGS (15)
  1. FLUTICASONE [Suspect]
     Indication: ASTHMA
     Route: 055
  2. ALBUTEROL [Suspect]
     Indication: ASTHMA
     Route: 055
  3. LEVALBUTEROL HCL [Suspect]
     Indication: ASTHMA
     Route: 055
  4. LEVALBUTEROL HCL [Suspect]
     Route: 055
  5. MOMETASONE FUROATE [Suspect]
     Indication: ASTHMA
     Route: 055
  6. EPINEPHRINE [Concomitant]
     Indication: BRONCHOSPASM
     Route: 030
  7. EPINEPHRINE [Concomitant]
     Indication: RASH
  8. EPINEPHRINE [Concomitant]
     Indication: DYSPNOEA
  9. BENADRYL [Concomitant]
     Indication: BRONCHOSPASM
     Route: 030
  10. BENADRYL [Concomitant]
     Indication: RASH
  11. BENADRYL [Concomitant]
     Indication: DYSPNOEA
  12. STEROIDS [Concomitant]
     Indication: BRONCHOSPASM
     Route: 042
  13. STEROIDS [Concomitant]
     Indication: RASH
  14. STEROIDS [Concomitant]
     Indication: DYSPNOEA
  15. MONTELUKAST [Concomitant]
     Indication: ASTHMA

REACTIONS (5)
  - ASTHMA [None]
  - BRONCHOSPASM [None]
  - DYSPNOEA [None]
  - PERIORBITAL OEDEMA [None]
  - RASH [None]
